FAERS Safety Report 8691333 (Version 10)
Quarter: 2014Q3

REPORT INFORMATION
  Report Type: Report from Study
  Country: TR (occurrence: TR)
  Receive Date: 20120730
  Receipt Date: 20140730
  Transmission Date: 20150326
  Serious: No
  Sender: FDA-Public Use
  Company Number: PHHY2012TR065053

PATIENT
  Age: 43 Year
  Sex: Female

DRUGS (5)
  1. ENDOXAN [Concomitant]
     Active Substance: CYCLOPHOSPHAMIDE
     Dosage: 2 DAYS, BID
  2. TASIGNA [Suspect]
     Active Substance: NILOTINIB
     Indication: CHRONIC MYELOID LEUKAEMIA
     Dosage: 800 MG, DAILY
     Route: 048
     Dates: start: 20110214
  3. BUSULFEX [Concomitant]
     Active Substance: BUSULFAN
     Dosage: 16 DOSES FOR 4 DAYS EVERY 6 HOURS
  4. TASIGNA [Suspect]
     Active Substance: NILOTINIB
     Dates: end: 20140401
  5. TASIGNA [Suspect]
     Active Substance: NILOTINIB
     Dosage: 800 MG, DAILY
     Route: 048
     Dates: start: 20140410, end: 20140411

REACTIONS (7)
  - Nausea [Recovered/Resolved]
  - Dizziness [Not Recovered/Not Resolved]
  - Full blood count abnormal [Not Recovered/Not Resolved]
  - Depression [Recovering/Resolving]
  - Malaise [Not Recovered/Not Resolved]
  - Rash erythematous [Unknown]
  - Vomiting [Recovered/Resolved]

NARRATIVE: CASE EVENT DATE: 20120710
